FAERS Safety Report 5932790-0 (Version None)
Quarter: 2008Q4

REPORT INFORMATION
  Report Type: 
  Country: None (occurrence: None)
  Receive Date: 20081028
  Receipt Date: 20081024
  Transmission Date: 20090506
  Serious: Yes (Other)
  Sender: FDA-Public Use
  Company Number: B0541345A

PATIENT
  Age: 75 Year
  Sex: Female
  Weight: 53 kg

DRUGS (9)
  1. VALTREX [Suspect]
     Indication: RASH
     Dosage: 1000MG THREE TIMES PER DAY
     Route: 065
     Dates: start: 20081009, end: 20081010
  2. TRAMADOL HCL [Concomitant]
     Indication: OSTEOPOROSIS
     Dosage: 50MG TWICE PER DAY
  3. FOSAMAX [Concomitant]
     Indication: OSTEOPOROSIS
  4. NEXIUM [Concomitant]
     Indication: ILL-DEFINED DISORDER
     Dosage: 20MG PER DAY
  5. COVERSYL [Concomitant]
     Indication: BLOOD PRESSURE
     Dosage: 5MG IN THE MORNING
  6. INDERAL [Concomitant]
     Indication: BLOOD PRESSURE
     Dosage: 10MG TWICE PER DAY
  7. FELDENE [Concomitant]
     Indication: INFLAMMATION
     Dosage: 10MG AS REQUIRED
  8. ZOCOR [Concomitant]
     Dosage: 20MG AT NIGHT
  9. UREX (AUSTRALIA) [Concomitant]
     Indication: BLOOD PRESSURE
     Dosage: 20MG IN THE MORNING

REACTIONS (2)
  - DERMATITIS ALLERGIC [None]
  - RASH [None]
